FAERS Safety Report 15285565 (Version 1)
Quarter: 2018Q3

REPORT INFORMATION
  Report Type: Report from Study
  Country: FR (occurrence: FR)
  Receive Date: 20180816
  Receipt Date: 20180816
  Transmission Date: 20181010
  Serious: Yes (Hospitalization)
  Sender: FDA-Public Use
  Company Number: FR-ASTRAZENECA-2018SE89372

PATIENT
  Age: 46 Year
  Sex: Female

DRUGS (6)
  1. METOPIMAZINE [Concomitant]
     Active Substance: METOPIMAZINE
     Route: 065
     Dates: start: 201802
  2. PHLOROGLUCINOL [Concomitant]
     Active Substance: PHLOROGLUCINOL
     Route: 065
     Dates: start: 201802
  3. OXAZEPAM. [Concomitant]
     Active Substance: OXAZEPAM
     Route: 065
     Dates: start: 20180417
  4. MEDI4736 [Suspect]
     Active Substance: DURVALUMAB
     Indication: NON-SMALL CELL LUNG CANCER
     Route: 042
     Dates: start: 20171102
  5. CETIRIZINE [Concomitant]
     Active Substance: CETIRIZINE HYDROCHLORIDE
     Route: 065
     Dates: start: 20171228
  6. DESLORATADINE. [Concomitant]
     Active Substance: DESLORATADINE
     Route: 065
     Dates: start: 20180125

REACTIONS (1)
  - Pancreatitis [Recovered/Resolved]

NARRATIVE: CASE EVENT DATE: 20180706
